FAERS Safety Report 24268165 (Version 1)
Quarter: 2024Q3

REPORT INFORMATION
  Report Type: Spontaneous
  Country: TH (occurrence: TH)
  Receive Date: 20240830
  Receipt Date: 20240830
  Transmission Date: 20241016
  Serious: Yes (Other)
  Sender: ENDO
  Company Number: TH-ENDO USA, INC.-2024-003279

PATIENT
  Age: 36 Year
  Sex: Male

DRUGS (17)
  1. KETALAR [Suspect]
     Active Substance: KETAMINE HYDROCHLORIDE
     Indication: Depression
     Dosage: 0.5 MILLIGRAM/KILOGRAM (DILUTED IN NORMAL SALINE), INFUSION
     Route: 041
  2. KETALAR [Suspect]
     Active Substance: KETAMINE HYDROCHLORIDE
     Dosage: 0.5 MILLIGRAM/KILOGRAM, INFUSION
     Route: 041
  3. KETALAR [Suspect]
     Active Substance: KETAMINE HYDROCHLORIDE
     Dosage: 0.5 MILLIGRAM/KILOGRAM, INFUSION
     Route: 041
  4. KETALAR [Suspect]
     Active Substance: KETAMINE HYDROCHLORIDE
     Dosage: 0.5 MILLIGRAM/KILOGRAM, INFUSION
     Route: 041
  5. KETALAR [Suspect]
     Active Substance: KETAMINE HYDROCHLORIDE
     Dosage: 0.5 MILLIGRAM/KILOGRAM, INFUSION
     Route: 041
  6. KETALAR [Suspect]
     Active Substance: KETAMINE HYDROCHLORIDE
     Dosage: 0.5 MILLIGRAM/KILOGRAM, INFUSION
     Route: 041
  7. KETALAR [Suspect]
     Active Substance: KETAMINE HYDROCHLORIDE
     Dosage: 0.5 MILLIGRAM/KILOGRAM, INFUSION
     Route: 041
  8. KETALAR [Suspect]
     Active Substance: KETAMINE HYDROCHLORIDE
     Dosage: 0.5 MILLIGRAM/KILOGRAM, INFUSION
     Route: 041
  9. KETALAR [Suspect]
     Active Substance: KETAMINE HYDROCHLORIDE
     Dosage: 0.5 MILLIGRAM/KILOGRAM, INFUSION
     Route: 041
  10. KETALAR [Suspect]
     Active Substance: KETAMINE HYDROCHLORIDE
     Dosage: 0.5 MILLIGRAM/KILOGRAM, INFUSION
     Route: 041
  11. KETALAR [Suspect]
     Active Substance: KETAMINE HYDROCHLORIDE
     Dosage: 0.5 MILLIGRAM/KILOGRAM, INFUSION
     Route: 041
  12. INSULIN DEGLUDEC [Concomitant]
     Active Substance: INSULIN DEGLUDEC
     Indication: Product used for unknown indication
     Dosage: 14 UNITS, DAILY
     Route: 065
  13. EZETIMIBE\SIMVASTATIN [Concomitant]
     Active Substance: EZETIMIBE\SIMVASTATIN
     Indication: Product used for unknown indication
     Dosage: 10/20 MILLIGRAM, DAILY
     Route: 065
  14. AGOMELATINE [Concomitant]
     Active Substance: AGOMELATINE
     Indication: Product used for unknown indication
     Dosage: 50 MILLIGRAM, DAILY
     Route: 065
  15. ETIFOXINE [Concomitant]
     Active Substance: ETIFOXINE
     Indication: Product used for unknown indication
     Dosage: 200 MILLIGRAM, DAILY
     Route: 065
  16. FLUNITRAZEPAM [Concomitant]
     Active Substance: FLUNITRAZEPAM
     Indication: Product used for unknown indication
     Dosage: 1 MILLIGRAM, DAILY
     Route: 065
  17. CLONAZEPAM [Concomitant]
     Active Substance: CLONAZEPAM
     Indication: Product used for unknown indication
     Dosage: 0.5 MILLIGRAM, DAILY
     Route: 065

REACTIONS (2)
  - Hypoglycaemia [Recovered/Resolved]
  - Off label use [Not Recovered/Not Resolved]
